FAERS Safety Report 7024427-7 (Version None)
Quarter: 2010Q3

REPORT INFORMATION
  Report Type: 
  Country: None (occurrence: None)
  Receive Date: 20100929
  Receipt Date: 20100918
  Transmission Date: 20110219
  Serious: Yes (Death)
  Sender: FDA-Public Use
  Company Number: 1000016160

PATIENT
  Age: 86 Year
  Sex: Female

DRUGS (2)
  1. MEMANTINE [Suspect]
     Dosage: 10 MG (10 MG, 1 IN 1 D), ORAL
     Route: 048
  2. RIVASTIGMINE (RIVASTIGMINE) (RIVASTIGMINE) [Concomitant]

REACTIONS (2)
  - BREAST CANCER METASTATIC [None]
  - METASTASES TO BONE [None]
